FAERS Safety Report 6639140-5 (Version None)
Quarter: 2010Q1

REPORT INFORMATION
  Report Type: 
  Country: None (occurrence: None)
  Receive Date: 20100312
  Receipt Date: 20100228
  Transmission Date: 20100710
  Serious: Yes (Other)
  Sender: FDA-Public Use
  Company Number: GB-DEXPHARM-20100233

PATIENT
  Age: 13 Hour
  Sex: Male

DRUGS (4)
  1. CHLORAPREP [Suspect]
     Dosage: TOPICAL
     Route: 061
     Dates: start: 20091130, end: 20091130
  2. BENZYLPENICILLIN [Concomitant]
  3. CEFOTAXIME [Concomitant]
  4. VITAMIN K TAB [Concomitant]

REACTIONS (2)
  - APPLICATION SITE ERYTHEMA [None]
  - APPLICATION SITE REACTION [None]
